FAERS Safety Report 8216519-1 (Version None)
Quarter: 2012Q1

REPORT INFORMATION
  Report Type: 
  Country: None (occurrence: None)
  Receive Date: 20120316
  Receipt Date: 20120313
  Transmission Date: 20120608
  Serious: Yes (Hospitalization)
  Sender: FDA-Public Use
  Company Number: AU-ABBOTT-12P-008-0914108-00

PATIENT
  Sex: Female

DRUGS (5)
  1. ESCITALOPRAM [Concomitant]
     Indication: PRODUCT USED FOR UNKNOWN INDICATION
  2. HUMIRA [Suspect]
     Indication: CROHN'S DISEASE
     Dates: start: 20110928, end: 20120216
  3. CALCIUM WITH VITAMIN D [Concomitant]
     Indication: VITAMIN SUPPLEMENTATION
  4. DEPO-PROVERA [Concomitant]
     Indication: PRODUCT USED FOR UNKNOWN INDICATION
  5. CRYSTALLINE VIT B12 INJ [Concomitant]
     Indication: PRODUCT USED FOR UNKNOWN INDICATION

REACTIONS (2)
  - SUBCUTANEOUS ABSCESS [None]
  - LYMPHADENITIS [None]
